FAERS Safety Report 9052976 (Version 1)
Quarter: 2013Q1

REPORT INFORMATION
  Report Type: Spontaneous
  Country: CL (occurrence: CL)
  Receive Date: 20130208
  Receipt Date: 20130208
  Transmission Date: 20140127
  Serious: Yes (Other)
  Sender: FDA-Public Use
  Company Number: CL-009507513-1302CHL002502

PATIENT
  Age: 29 Year
  Sex: Female

DRUGS (3)
  1. NUVARING [Suspect]
     Indication: CONTRACEPTION
     Dosage: DELIVERS 0.120MG/0.015 MG/DAY
     Route: 067
     Dates: start: 201206, end: 201210
  2. NUVARING [Suspect]
     Dosage: DELIVERS 0.120MG/0.015 MG/DAY
     Route: 067
     Dates: start: 20130125
  3. VENLAFAXINE HYDROCHLORIDE [Concomitant]
     Route: 048

REACTIONS (2)
  - Hip surgery [Unknown]
  - Menstruation irregular [Unknown]
